FAERS Safety Report 16483895 (Version 1)
Quarter: 2019Q2

REPORT INFORMATION
  Report Type: Spontaneous
  Country: US (occurrence: US)
  Receive Date: 20190516
  Receipt Date: 20190516
  Transmission Date: 20190711
  Serious: No
  Sender: FDA-Public Use
  Company Number: None

PATIENT
  Age: 52 Year
  Sex: Female

DRUGS (4)
  1. MYCOPHENLATE [Concomitant]
     Active Substance: MYCOPHENOLIC ACID
  2. SILDENAFIL TAB 20MG [Suspect]
     Active Substance: SILDENAFIL
     Route: 058
     Dates: start: 201901
  3. TRACLEER [Concomitant]
     Active Substance: BOSENTAN
  4. COUMADIN [Concomitant]
     Active Substance: WARFARIN SODIUM

REACTIONS (1)
  - Pulmonary congestion [None]

NARRATIVE: CASE EVENT DATE: 20190516
